FAERS Safety Report 16992771 (Version 1)
Quarter: 2019Q4

REPORT INFORMATION
  Report Type: Spontaneous
  Country: US (occurrence: US)
  Receive Date: 20191104
  Receipt Date: 20191104
  Transmission Date: 20200122
  Serious: Yes (Hospitalization)
  Sender: FDA-Public Use
  Company Number: None

PATIENT
  Age: 66 Year
  Sex: Male
  Weight: 94 kg

DRUGS (2)
  1. NUCALA [Suspect]
     Active Substance: MEPOLIZUMAB
     Indication: ASTHMA
     Dosage: 100 MG/ML SUBCUTANEOUS EVERY 28 DAYS?
     Route: 058
     Dates: start: 20190703, end: 20191001
  2. NUCALA [Concomitant]
     Active Substance: MEPOLIZUMAB
     Dates: start: 20190703, end: 20191001

REACTIONS (2)
  - Pneumonia [None]
  - Empyema [None]

NARRATIVE: CASE EVENT DATE: 20191019
